FAERS Safety Report 20786633 (Version 1)
Quarter: 2022Q2

REPORT INFORMATION
  Report Type: Spontaneous
  Country: DE (occurrence: DE)
  Receive Date: 20220505
  Receipt Date: 20220505
  Transmission Date: 20220721
  Serious: Yes (Other)
  Sender: FDA-Public Use
  Company Number: DE-CADRBFARM-2022291061

PATIENT
  Age: 88 Year
  Sex: Female
  Weight: 45 kg

DRUGS (5)
  1. CITALOPRAM [Suspect]
     Active Substance: CITALOPRAM HYDROBROMIDE
     Indication: Dementia
     Dosage: 10 MILLIGRAM, DAILY, 1 X ONE PILL IN THE MORNING
     Route: 048
     Dates: start: 20200301, end: 20200624
  2. ESCITALOPRAM [Suspect]
     Active Substance: ESCITALOPRAM OXALATE
     Indication: Depressed mood
     Dosage: 10 MILLIGRAM, DAILY
     Route: 048
     Dates: start: 20210218, end: 20210324
  3. ASS-ratiopharm 100 [Concomitant]
     Indication: Product used for unknown indication
     Dosage: ()
     Route: 065
     Dates: end: 202007
  4. calcium 500 [Concomitant]
     Indication: Product used for unknown indication
     Dosage: ()
     Route: 065
  5. Lisinopril AL 10 mg [Concomitant]
     Indication: Product used for unknown indication
     Dosage: ()
     Route: 065
     Dates: end: 202007

REACTIONS (5)
  - Wound [Recovered/Resolved]
  - Fall [Recovered/Resolved]
  - Loss of consciousness [Recovered/Resolved]
  - Femur fracture [Recovered/Resolved]
  - Syncope [Recovered/Resolved]
